FAERS Safety Report 11589969 (Version 1)
Quarter: 2015Q4

REPORT INFORMATION
  Report Type: Other
  Country: US (occurrence: US)
  Receive Date: 20151002
  Receipt Date: 20151002
  Transmission Date: 20160304
  Serious: Yes (Disabling)
  Sender: FDA-Public Use
  Company Number: US-DEP_12765_2015

PATIENT
  Age: 87 Year
  Sex: Male
  Weight: 76 kg

DRUGS (3)
  1. GRALISE [Suspect]
     Active Substance: GABAPENTIN
     Indication: NEURALGIA
     Dosage: STARTER PACK; TITRATED UP TO 1500MG ONCE DAILY WITH DINNER
     Route: 048
     Dates: start: 201509
  2. UNSPECIFIED HEART MEDICATIONS [Concomitant]
     Indication: CARDIAC DISORDER
     Dosage: DF
  3. GRALISE [Suspect]
     Active Substance: GABAPENTIN
     Indication: OFF LABEL USE
     Dosage: STARTER PACK; TITRATED UP TO 1500MG ONCE DAILY WITH DINNER
     Route: 048
     Dates: start: 201509

REACTIONS (4)
  - Oedema peripheral [Not Recovered/Not Resolved]
  - Abasia [Not Recovered/Not Resolved]
  - Pain [Not Recovered/Not Resolved]
  - Confusional state [Not Recovered/Not Resolved]

NARRATIVE: CASE EVENT DATE: 201509
